FAERS Safety Report 5615948-X (Version None)
Quarter: 2008Q1

REPORT INFORMATION
  Report Type: 
  Country: None (occurrence: None)
  Receive Date: 20080206
  Receipt Date: 20080204
  Transmission Date: 20080703
  Serious: Yes (Other)
  Sender: FDA-Public Use
  Company Number: PHEH2007US14335

PATIENT
  Age: 82 Year
  Sex: Female

DRUGS (2)
  1. TEKTURNA [Suspect]
     Indication: HYPERTENSION
     Dosage: 150 MG, QD
     Route: 048
  2. COREG [Concomitant]

REACTIONS (3)
  - DYSPHAGIA [None]
  - DYSPHONIA [None]
  - HYPOTENSION [None]
